FAERS Safety Report 10401912 (Version 1)
Quarter: 2014Q1

REPORT INFORMATION
  Report Type: Spontaneous
  Country: US (occurrence: None)
  Receive Date: 20130815
  Receipt Date: 20130815
  Transmission Date: 20141002
  Serious: Yes (Other)
  Sender: FDA-Public Use
  Company Number: ADR-2012-01945

PATIENT
  Age: 54 Year
  Sex: Female

DRUGS (3)
  1. BACLOFEN INTRATHECAL (BACLOFEN INJECTION) [Suspect]
     Indication: MUSCLE SPASTICITY
     Route: 037
  2. MORPHINE [Concomitant]
  3. BUPIVACAIN [Concomitant]

REACTIONS (7)
  - Decreased appetite [None]
  - Chills [None]
  - Drug withdrawal syndrome [None]
  - Malaise [None]
  - Vomiting [None]
  - Dehydration [None]
  - Coma [None]
